FAERS Safety Report 9194117 (Version 1)
Quarter: 2013Q1

REPORT INFORMATION
  Report Type: Spontaneous
  Country: ES (occurrence: ES)
  Receive Date: 20130327
  Receipt Date: 20130327
  Transmission Date: 20140127
  Serious: Yes (Hospitalization)
  Sender: FDA-Public Use
  Company Number: ES-ELI_LILLY_AND_COMPANY-ES201303008333

PATIENT
  Age: 78 None
  Sex: Female
  Weight: 72 kg

DRUGS (3)
  1. FORSTEO [Suspect]
     Indication: OSTEOPOROSIS
     Dosage: 20 UG, QD
     Route: 058
     Dates: start: 20090323, end: 201005
  2. INSULINE [Concomitant]
     Indication: DIABETES MELLITUS
     Dosage: UNK, UNKNOWN
     Route: 048
  3. SEGURIL [Concomitant]
     Indication: DIURETIC THERAPY
     Dosage: 1 DF, EVERY 12 HOURS
     Route: 048

REACTIONS (3)
  - Acute pulmonary oedema [Recovering/Resolving]
  - Respiratory disorder [Unknown]
  - Pneumonia [Unknown]
